FAERS Safety Report 15847244 (Version 1)
Quarter: 2019Q1

REPORT INFORMATION
  Report Type: Spontaneous
  Country: JP (occurrence: JP)
  Receive Date: 20190121
  Receipt Date: 20190121
  Transmission Date: 20190417
  Serious: Yes (Other)
  Sender: FDA-Public Use
  Company Number: JP-SUN PHARMACEUTICAL INDUSTRIES LTD-2019R1-196475

PATIENT
  Age: 79 Year
  Sex: Female

DRUGS (2)
  1. TICLOPIDINE [Suspect]
     Active Substance: TICLOPIDINE
     Indication: ANTICOAGULANT THERAPY
     Dosage: UNK
     Route: 065
  2. CILOSTAZOL. [Suspect]
     Active Substance: CILOSTAZOL
     Indication: ANTICOAGULANT THERAPY
     Dosage: UNK
     Route: 065

REACTIONS (1)
  - Muscle haemorrhage [Recovered/Resolved]
